FAERS Safety Report 4459055-0 (Version None)
Quarter: 2004Q3

REPORT INFORMATION
  Report Type: 
  Country: None (occurrence: None)
  Receive Date: 20040927
  Receipt Date: 20040825
  Transmission Date: 20050211
  Serious: Yes (Death)
  Sender: FDA-Public Use
  Company Number: 200412757JP

PATIENT
  Age: 66 Year
  Sex: Male
  Weight: 77.7 kg

DRUGS (7)
  1. TAXOTERE [Suspect]
     Indication: LUNG ADENOCARCINOMA
     Route: 041
     Dates: start: 20040406, end: 20040615
  2. DIOVAN [Concomitant]
     Indication: HYPERTENSION
     Route: 048
     Dates: end: 20040705
  3. TAGAMET [Concomitant]
     Indication: GASTRITIS
     Route: 048
     Dates: end: 20040705
  4. LOXONIN [Concomitant]
     Indication: PAIN
     Route: 048
     Dates: end: 20040705
  5. MUCODYNE [Concomitant]
     Indication: PRODUCTIVE COUGH
     Route: 048
     Dates: end: 20040705
  6. MAGNESIUM OXIDE [Concomitant]
     Indication: CONSTIPATION
     Route: 048
     Dates: end: 20040705
  7. HALCION [Concomitant]
     Indication: INSOMNIA
     Route: 048
     Dates: end: 20040705

REACTIONS (5)
  - BLOOD LACTATE DEHYDROGENASE INCREASED [None]
  - CONDITION AGGRAVATED [None]
  - INTERSTITIAL LUNG DISEASE [None]
  - PULMONARY FIBROSIS [None]
  - RESPIRATORY FAILURE [None]
